FAERS Safety Report 21565868 (Version 7)
Quarter: 2023Q1

REPORT INFORMATION
  Report Type: Spontaneous
  Country: GR (occurrence: GR)
  Receive Date: 20221108
  Receipt Date: 20230201
  Transmission Date: 20230417
  Serious: No
  Sender: FDA-Public Use
  Company Number: GR-PFIZER INC-202201271308

PATIENT
  Age: 8 Year
  Sex: Female
  Weight: 23 kg

DRUGS (2)
  1. GENOTROPIN [Suspect]
     Active Substance: SOMATROPIN
     Indication: Hypopituitarism
     Dosage: UNK/5.3 MG PEN
     Route: 058
     Dates: start: 202103
  2. GENOTROPIN [Suspect]
     Active Substance: SOMATROPIN
     Indication: Growth hormone deficiency

REACTIONS (3)
  - Device leakage [Unknown]
  - Device issue [Unknown]
  - Drug dose omission by device [Unknown]
